FAERS Safety Report 5476890-0 (Version None)
Quarter: 2007Q3

REPORT INFORMATION
  Report Type: 
  Country: None (occurrence: None)
  Receive Date: 20070831
  Receipt Date: 20070226
  Transmission Date: 20080115
  Serious: Yes (Life-Threatening)
  Sender: FDA-Public Use
  Company Number: S07-USA-00920-03

PATIENT

DRUGS (1)
  1. INFASURF PRESERVATIVE FREE [Suspect]

REACTIONS (1)
  - ENDOTRACHEAL INTUBATION COMPLICATION [None]
